FAERS Safety Report 4415042-X (Version None)
Quarter: 2004Q3

REPORT INFORMATION
  Report Type: 
  Country: None (occurrence: None)
  Receive Date: 20040729
  Receipt Date: 20040713
  Transmission Date: 20050211
  Serious: No
  Sender: FDA-Public Use
  Company Number: 233607K04USA

PATIENT
  Age: 42 Year
  Sex: Male

DRUGS (1)
  1. REBIF [Suspect]
     Indication: MULTIPLE SCLEROSIS
     Dosage: 44 MCG, 1 IN 1 DAYS, SUBCUTANEOUS
     Route: 058
     Dates: start: 20040712

REACTIONS (9)
  - BLEPHAROSPASM [None]
  - CONDITION AGGRAVATED [None]
  - DYSKINESIA [None]
  - FEELING ABNORMAL [None]
  - MEDICATION ERROR [None]
  - MOVEMENT DISORDER [None]
  - MUSCLE SPASMS [None]
  - NAUSEA [None]
  - VISUAL DISTURBANCE [None]
